FAERS Safety Report 9013556 (Version 1)
Quarter: 2013Q1

REPORT INFORMATION
  Report Type: Spontaneous
  Country: BR (occurrence: BR)
  Receive Date: 20130115
  Receipt Date: 20130115
  Transmission Date: 20140127
  Serious: Yes (Death)
  Sender: FDA-Public Use
  Company Number: PHHY2012BR061362

PATIENT
  Sex: Female

DRUGS (1)
  1. EXELON PATCH [Suspect]
     Indication: DEMENTIA ALZHEIMER^S TYPE
     Dosage: 9MG/5CM2 (4.6 MG) DAILY
     Route: 062

REACTIONS (2)
  - Dementia Alzheimer^s type [Fatal]
  - Hypersensitivity [Recovered/Resolved]
